FAERS Safety Report 12353860 (Version 1)
Quarter: 2016Q2

REPORT INFORMATION
  Report Type: Spontaneous
  Country: US (occurrence: US)
  Receive Date: 20160511
  Receipt Date: 20160511
  Transmission Date: 20160815
  Serious: No
  Sender: FDA-Public Use
  Company Number: US-JNJFOC-20160328861

PATIENT
  Sex: Female
  Weight: 56.7 kg

DRUGS (2)
  1. TRAMADOL ER [Suspect]
     Active Substance: TRAMADOL HYDROCHLORIDE
     Indication: FLANK PAIN
     Dosage: ONCE A DAY
     Route: 048
  2. TRAMADOL ER [Suspect]
     Active Substance: TRAMADOL HYDROCHLORIDE
     Indication: ABDOMINAL PAIN
     Dosage: ONCE A DAY
     Route: 048

REACTIONS (1)
  - Drug ineffective [Unknown]
